FAERS Safety Report 4608234-8 (Version None)
Quarter: 2005Q2

REPORT INFORMATION
  Report Type: 
  Country: None (occurrence: None)
  Receive Date: 20050303
  Receipt Date: 20041109
  Transmission Date: 20051028
  Serious: No
  Sender: FDA-Public Use
  Company Number: 702290

PATIENT
  Age: 42 Year
  Sex: Male

DRUGS (8)
  1. AMEVIVE [Suspect]
     Indication: PSORIASIS
     Dosage: UNKNOWN; QW; IM
     Route: 030
     Dates: start: 20040318, end: 20040611
  2. LIDEX SOLUTION [Concomitant]
  3. TEMOVATE SOLUTION [Concomitant]
  4. DERMA-SMOOTHE/FS [Concomitant]
  5. DOVONEX [Concomitant]
  6. DESOWEN CREAM [Concomitant]
  7. P + S LIQUID [Concomitant]
  8. ASPIRIN [Concomitant]

REACTIONS (1)
  - T-LYMPHOCYTE COUNT DECREASED [None]
